FAERS Safety Report 9411706 (Version 1)
Quarter: 2013Q3

REPORT INFORMATION
  Report Type: Spontaneous
  Country: US (occurrence: US)
  Receive Date: 20130722
  Receipt Date: 20130722
  Transmission Date: 20140515
  Serious: Yes (Death)
  Sender: FDA-Public Use
  Company Number: US-COVIDIEN/TYCO HEALTHCARE/MALLINCKRODT-T201300923

PATIENT
  Sex: 0

DRUGS (7)
  1. MORPHINE SULFATE [Suspect]
     Dosage: UNK
     Dates: start: 201211, end: 201212
  2. CELEBREX [Concomitant]
  3. LORTAB                             /00607101/ [Concomitant]
  4. LEVOXYL [Concomitant]
     Indication: THYROID DISORDER
  5. LISINOPRIL [Concomitant]
  6. PRAVASTATIN [Concomitant]
     Indication: BLOOD CHOLESTEROL
  7. ZIAC [Concomitant]
     Indication: BLOOD PRESSURE

REACTIONS (7)
  - Accidental exposure to product [Recovered/Resolved]
  - Rash [Not Recovered/Not Resolved]
  - Scab [Not Recovered/Not Resolved]
  - Hypoaesthesia [Not Recovered/Not Resolved]
  - Nail disorder [Not Recovered/Not Resolved]
  - Skin exfoliation [Unknown]
  - Swelling [Unknown]
